FAERS Safety Report 12637747 (Version 1)
Quarter: 2016Q3

REPORT INFORMATION
  Report Type: Spontaneous
  Country: US (occurrence: US)
  Receive Date: 20160809
  Receipt Date: 20160809
  Transmission Date: 20161109
  Serious: No
  Sender: FDA-Public Use
  Company Number: US-ABBVIE-15P-163-1478083-00

PATIENT
  Sex: Female

DRUGS (1)
  1. DEPAKOTE [Suspect]
     Active Substance: DIVALPROEX SODIUM
     Indication: BIPOLAR DISORDER
     Dosage: 1000 MG OR MORE PER DAY
     Route: 048

REACTIONS (5)
  - Economic problem [Unknown]
  - Sick relative [Unknown]
  - Emotional distress [Unknown]
  - Unevaluable event [Unknown]
  - Exposure during pregnancy [Unknown]
